FAERS Safety Report 23984370 (Version 1)
Quarter: 2024Q2

REPORT INFORMATION
  Report Type: Spontaneous
  Country: US (occurrence: US)
  Receive Date: 20240618
  Receipt Date: 20240618
  Transmission Date: 20240716
  Serious: No
  Sender: FDA-Public Use
  Company Number: US-ABBVIE-5802701

PATIENT
  Sex: Female

DRUGS (1)
  1. QULIPTA [Suspect]
     Active Substance: ATOGEPANT
     Indication: Migraine prophylaxis
     Dosage: FORM STRENGTH: 60 MILLIGRAM, FREQUENCY TEXT: EVERY NIGHT
     Route: 048
     Dates: start: 2020

REACTIONS (3)
  - Dizziness [Unknown]
  - Temperature intolerance [Unknown]
  - Unevaluable event [Unknown]
